FAERS Safety Report 4469435-5 (Version None)
Quarter: 2004Q4

REPORT INFORMATION
  Report Type: 
  Country: None (occurrence: None)
  Receive Date: 20041005
  Receipt Date: 20041005
  Transmission Date: 20050328
  Serious: Yes (Hospitalization)
  Sender: FDA-Public Use
  Company Number: None

PATIENT
  Sex: Male

DRUGS (15)
  1. GATIFLOXACIN [Suspect]
     Indication: PNEUMONIA
     Dosage: 200 MG   DAILY   ORAL
     Route: 048
     Dates: start: 20040512, end: 20040513
  2. OMEPRAZOLE [Concomitant]
  3. WARFARIN SODIUM [Concomitant]
  4. FORMOTEROL [Concomitant]
  5. ALBUTEROL [Concomitant]
  6. IPRATROPIUM BROMIDE [Concomitant]
  7. FLUNISOLIDE [Concomitant]
  8. DILTIAZEM [Concomitant]
  9. SIMVASTATIN [Concomitant]
  10. NORTRIPTYLINE HCL [Concomitant]
  11. GEMFIBROZIL [Concomitant]
  12. CALCIUM CARBONATE [Concomitant]
  13. ASPIRIN [Concomitant]
  14. DOCUSATE [Concomitant]
  15. LISINOPRIL [Concomitant]

REACTIONS (2)
  - CONVULSION [None]
  - HYPOGLYCAEMIA [None]
